FAERS Safety Report 5552404-1 (Version None)
Quarter: 2007Q4

REPORT INFORMATION
  Report Type: 
  Country: None (occurrence: None)
  Receive Date: 20071212
  Receipt Date: 20070615
  Transmission Date: 20080405
  Serious: No
  Sender: FDA-Public Use
  Company Number: US-AMGEN-KDL229864

PATIENT
  Sex: Female

DRUGS (4)
  1. ENBREL [Suspect]
     Indication: RHEUMATOID ARTHRITIS
     Route: 058
     Dates: start: 20070607
  2. PLAQUENIL [Concomitant]
     Route: 048
     Dates: start: 19970101
  3. ARAVA [Concomitant]
     Dates: start: 20020101
  4. PLAQUENIL [Concomitant]
     Dates: start: 19970101

REACTIONS (1)
  - INJECTION SITE BRUISING [None]
